FAERS Safety Report 5744961-7 (Version None)
Quarter: 2008Q2

REPORT INFORMATION
  Report Type: 
  Country: None (occurrence: None)
  Receive Date: 20080521
  Receipt Date: 20080514
  Transmission Date: 20081010
  Serious: Yes (Death, Hospitalization)
  Sender: FDA-Public Use
  Company Number: US-JNJFOC-20080300013

PATIENT
  Sex: Male
  Weight: 74.84 kg

DRUGS (13)
  1. DURAGESIC-100 [Suspect]
     Route: 062
  2. DURAGESIC-100 [Suspect]
     Route: 062
  3. DURAGESIC-100 [Suspect]
     Indication: LARYNGEAL CANCER
     Route: 062
  4. COMPAZINE [Concomitant]
     Route: 065
  5. COZAAR [Concomitant]
     Route: 065
  6. LASIX [Concomitant]
     Route: 065
  7. SYNTHROID [Concomitant]
     Route: 065
  8. REGLAN [Concomitant]
     Route: 065
  9. ALBUTEROL [Concomitant]
     Route: 065
  10. TEMAZEPAM [Concomitant]
     Route: 065
  11. ATIVAN [Concomitant]
     Route: 065
  12. DARVOCET [Concomitant]
     Route: 065
  13. CELEBREX [Concomitant]
     Route: 065

REACTIONS (3)
  - CARDIAC FAILURE CONGESTIVE [None]
  - NEOPLASM MALIGNANT [None]
  - PNEUMONIA [None]
